FAERS Safety Report 8854397 (Version 1)
Quarter: 2012Q4

REPORT INFORMATION
  Report Type: 
  Country: US (occurrence: US)
  Receive Date: 20121023
  Receipt Date: 20121023
  Transmission Date: 20130627
  Serious: No
  Sender: FDA-Public Use
  Company Number: US-VERTEX PHARMACEUTICAL INC.-2012-023078

PATIENT
  Sex: Female
  Weight: 59 kg

DRUGS (10)
  1. VX-950 [Suspect]
     Indication: HEPATITIS C
     Dosage: 750 mg, tid
     Route: 048
     Dates: start: 20120813
  2. RIBASPHERE [Concomitant]
     Indication: HEPATITIS C
     Dosage: 3AM / 4PM
     Dates: start: 20120813
  3. PEGASYS [Concomitant]
     Indication: HEPATITIS C
     Dosage: 180 ?g, UNK
     Route: 058
     Dates: start: 20120813
  4. ZOFRAN                             /00955301/ [Concomitant]
  5. OXYCODONE HCL [Concomitant]
  6. METOPROLOL TARTRATE [Concomitant]
     Dosage: UNK, qd
  7. AMITRIPTYLINE HCL [Concomitant]
     Dosage: 100 mg, qd
  8. AMITIZA [Concomitant]
     Dosage: 8 ?g, prn
  9. PRILOSEC                           /00661201/ [Concomitant]
     Dosage: 20 mg, qd
  10. ALBUTEROL SULFATE [Concomitant]
     Dosage: 90 ?g, prn

REACTIONS (4)
  - Depressed mood [Unknown]
  - Frustration [Unknown]
  - Chills [Unknown]
  - Nausea [Unknown]
